FAERS Safety Report 6520291-0 (Version None)
Quarter: 2009Q4

REPORT INFORMATION
  Report Type: 
  Country: None (occurrence: None)
  Receive Date: 20091229
  Receipt Date: 20091222
  Transmission Date: 20100525
  Serious: Yes (Other)
  Sender: FDA-Public Use
  Company Number: PHHO2009CH06086

PATIENT
  Sex: Male
  Weight: 90.4 kg

DRUGS (6)
  1. AFINITOR [Suspect]
     Indication: METASTATIC RENAL CELL CARCINOMA
     Dosage: OPEN LABEL
     Route: 048
     Dates: start: 20081107, end: 20090703
  2. CORTICOSTEROIDS [Suspect]
  3. ROSUVASTATIN [Concomitant]
  4. BISPHOSPHONATES [Concomitant]
  5. RADIOTHERAPY [Concomitant]
  6. IBANDRONAT [Concomitant]

REACTIONS (4)
  - HYPERTRIGLYCERIDAEMIA [None]
  - OSTEONECROSIS [None]
  - PAIN IN EXTREMITY [None]
  - PERIOSTITIS [None]
